FAERS Safety Report 5916775-6 (Version None)
Quarter: 2008Q4

REPORT INFORMATION
  Report Type: 
  Country: None (occurrence: None)
  Receive Date: 20081013
  Receipt Date: 20070220
  Transmission Date: 20090506
  Serious: Yes (Other)
  Sender: FDA-Public Use
  Company Number: US-GENENTECH-236929

PATIENT
  Age: 71 Year
  Sex: Male

DRUGS (1)
  1. LUCENTIS [Suspect]
     Indication: CHOROIDAL NEOVASCULARISATION
     Dosage: 0.5 MG, UNK
     Route: 031

REACTIONS (1)
  - RETINAL PIGMENT EPITHELIAL TEAR [None]
